FAERS Safety Report 24116220 (Version 1)
Quarter: 2024Q3

REPORT INFORMATION
  Report Type: Spontaneous
  Country: IT (occurrence: IT)
  Receive Date: 20240722
  Receipt Date: 20240722
  Transmission Date: 20241016
  Serious: Yes (Hospitalization)
  Sender: NOVARTIS
  Company Number: None

PATIENT
  Age: 42 Year
  Sex: Male

DRUGS (1)
  1. KESIMPTA [Suspect]
     Active Substance: OFATUMUMAB
     Indication: Relapsing-remitting multiple sclerosis
     Dosage: 1 DOSAGE FORM
     Route: 058
     Dates: start: 20240229

REACTIONS (2)
  - Parvovirus B19 infection [Recovered/Resolved]
  - Urogram [Recovered/Resolved]

NARRATIVE: CASE EVENT DATE: 20240603
